FAERS Safety Report 15393105 (Version 1)
Quarter: 2018Q3

REPORT INFORMATION
  Report Type: Spontaneous
  Country: GB (occurrence: GB)
  Receive Date: 20180917
  Receipt Date: 20180917
  Transmission Date: 20181010
  Serious: Yes (Other)
  Sender: FDA-Public Use
  Company Number: PHHY2018GB100110

PATIENT
  Age: 74 Year
  Sex: Male
  Weight: 72 kg

DRUGS (9)
  1. LANSOPRAZOLE. [Concomitant]
     Active Substance: LANSOPRAZOLE
     Indication: PRODUCT USED FOR UNKNOWN INDICATION
     Dosage: 1 DF, QD(EVERY MORNING)
     Route: 065
     Dates: start: 20140519
  2. LISINOPRIL. [Suspect]
     Active Substance: LISINOPRIL
     Indication: PRODUCT USED FOR UNKNOWN INDICATION
     Dosage: 2.5 MG, UNK
     Route: 065
  3. DALTEPARIN [Concomitant]
     Active Substance: DALTEPARIN
     Indication: PRODUCT USED FOR UNKNOWN INDICATION
     Dosage: 1 DF, QD
     Route: 065
     Dates: start: 20171005
  4. BRALTUS [Concomitant]
     Indication: PRODUCT USED FOR UNKNOWN INDICATION
     Dosage: 1 DF, QD(ONE CAPSULE)
     Route: 055
     Dates: start: 20170516
  5. GLYCERYL TRINITRATE [Concomitant]
     Active Substance: NITROGLYCERIN
     Indication: PRODUCT USED FOR UNKNOWN INDICATION
     Dosage: UNK(ONE OR TWO DOSES)
     Route: 060
  6. BISOPROLOL [Concomitant]
     Active Substance: BISOPROLOL
     Indication: PRODUCT USED FOR UNKNOWN INDICATION
     Dosage: 1 DF, QD(EVERY MORNING)
     Route: 065
     Dates: start: 20140519
  7. ATORVASTATIN [Concomitant]
     Active Substance: ATORVASTATIN
     Indication: PRODUCT USED FOR UNKNOWN INDICATION
     Dosage: 1 DF, QD(EVERY NIGHT)
     Route: 065
     Dates: start: 20140519
  8. ASPIRIN. [Concomitant]
     Active Substance: ASPIRIN
     Dosage: 1 DF, QD(MORNING)
     Route: 065
     Dates: start: 20180815
  9. ASPIRIN. [Concomitant]
     Active Substance: ASPIRIN
     Indication: PRODUCT USED FOR UNKNOWN INDICATION
     Dosage: 1 DF, QD(MORNING)
     Route: 065
     Dates: start: 20180308

REACTIONS (1)
  - Hypokalaemia [Recovered/Resolved]

NARRATIVE: CASE EVENT DATE: 20180308
